FAERS Safety Report 8222980-9 (Version None)
Quarter: 2012Q1

REPORT INFORMATION
  Report Type: 
  Country: None (occurrence: None)
  Receive Date: 20120320
  Receipt Date: 20120307
  Transmission Date: 20120608
  Serious: Yes (Other)
  Sender: FDA-Public Use
  Company Number: PHHY2011BR108781

PATIENT
  Sex: Female

DRUGS (4)
  1. REBIF [Concomitant]
  2. TEGRETOL-XR [Suspect]
     Indication: TRIGEMINAL NEURALGIA
  3. TEGRETOL [Suspect]
     Indication: TRIGEMINAL NEURALGIA
  4. COPAXONE [Concomitant]
     Indication: MULTIPLE SCLEROSIS

REACTIONS (4)
  - PARALYSIS [None]
  - HYPOKINESIA [None]
  - SENSATION OF HEAVINESS [None]
  - TRIGEMINAL NEURALGIA [None]
